FAERS Safety Report 13957850 (Version 1)
Quarter: 2017Q3

REPORT INFORMATION
  Report Type: Spontaneous
  Country: US (occurrence: US)
  Receive Date: 20170911
  Receipt Date: 20170911
  Transmission Date: 20171128
  Serious: Yes (Hospitalization, Other)
  Sender: FDA-Public Use
  Company Number: US-ROCHE-1130802

PATIENT
  Sex: Male

DRUGS (7)
  1. RITUXAN [Suspect]
     Active Substance: RITUXIMAB
     Indication: CHRONIC LYMPHOCYTIC LEUKAEMIA
     Route: 065
  2. LOPRESSOR [Concomitant]
     Active Substance: METOPROLOL TARTRATE
  3. TYLENOL [Concomitant]
     Active Substance: ACETAMINOPHEN
     Route: 065
  4. DETROL [Concomitant]
     Active Substance: TOLTERODINE TARTRATE
     Dosage: HALF BID X 2 WEEKS
     Route: 065
  5. ANZEMET [Concomitant]
     Active Substance: DOLASETRON MESYLATE
     Route: 065
  6. MVI [Concomitant]
     Active Substance: VITAMINS
  7. BENADRYL [Concomitant]
     Active Substance: DIPHENHYDRAMINE HYDROCHLORIDE
     Route: 065

REACTIONS (11)
  - Hypogammaglobulinaemia [Unknown]
  - Wound infection [Unknown]
  - Pyrexia [Recovered/Resolved]
  - Urinary tract infection [Unknown]
  - Disease progression [Unknown]
  - Anaemia [Unknown]
  - Anorectal discomfort [Recovered/Resolved]
  - Abdominal discomfort [Unknown]
  - Mouth ulceration [Recovered/Resolved]
  - Chills [Recovered/Resolved]
  - Nausea [Unknown]
